FAERS Safety Report 7949745-7 (Version None)
Quarter: 2011Q4

REPORT INFORMATION
  Report Type: 
  Country: None (occurrence: None)
  Receive Date: 20111130
  Receipt Date: 20111124
  Transmission Date: 20120403
  Serious: Yes (Death, Other)
  Sender: FDA-Public Use
  Company Number: PHHY2011MA103002

PATIENT
  Age: 47 Year
  Sex: Female

DRUGS (1)
  1. IMATINIB MESYLATE [Suspect]
     Indication: GASTROINTESTINAL STROMAL TUMOUR

REACTIONS (7)
  - HYPOGLYCAEMIA [None]
  - PARANEOPLASTIC SYNDROME [None]
  - HEART RATE INCREASED [None]
  - PALPITATIONS [None]
  - ALTERED STATE OF CONSCIOUSNESS [None]
  - HYPERHIDROSIS [None]
  - HYPOKALAEMIA [None]
